FAERS Safety Report 7556665-9 (Version None)
Quarter: 2011Q2

REPORT INFORMATION
  Report Type: 
  Country: None (occurrence: None)
  Receive Date: 20110620
  Receipt Date: 20110613
  Transmission Date: 20111010
  Serious: Yes (Other)
  Sender: FDA-Public Use
  Company Number: CA-BRISTOL-MYERS SQUIBB COMPANY-15838188

PATIENT
  Age: 66 Year
  Sex: Male

DRUGS (4)
  1. ORENCIA [Suspect]
     Indication: RHEUMATOID ARTHRITIS
     Dosage: LAST DOSE 11JUN11;INF: 24 INFUSIONS.
     Route: 042
     Dates: start: 20091021
  2. METHOTREXATE TABS [Concomitant]
  3. REMICADE [Concomitant]
  4. CELEBREX [Concomitant]

REACTIONS (2)
  - ANXIETY [None]
  - ARRHYTHMIA [None]
